FAERS Safety Report 13894763 (Version 1)
Quarter: 2017Q3

REPORT INFORMATION
  Report Type: Spontaneous
  Country: US (occurrence: None)
  Receive Date: 20170817
  Receipt Date: 20170817
  Transmission Date: 20171127
  Serious: No
  Sender: FDA-Public Use
  Company Number: None

PATIENT
  Age: 64 Year
  Sex: Female

DRUGS (1)
  1. XELJANZ XR [Suspect]
     Active Substance: TOFACITINIB CITRATE
     Indication: MALAISE
     Route: 048
     Dates: start: 20170519, end: 20170815

REACTIONS (3)
  - Drug ineffective [None]
  - Hepatic enzyme increased [None]
  - Therapy cessation [None]

NARRATIVE: CASE EVENT DATE: 20170815
